FAERS Safety Report 6633884-7 (Version None)
Quarter: 2010Q1

REPORT INFORMATION
  Report Type: 
  Country: None (occurrence: None)
  Receive Date: 20100309
  Receipt Date: 20100222
  Transmission Date: 20100710
  Serious: Yes (Death, Hospitalization, Other)
  Sender: FDA-Public Use
  Company Number: 2009002883

PATIENT
  Age: 61 Year
  Sex: Female
  Weight: 44.6 kg

DRUGS (5)
  1. ERLOTINIB HYDROCHLORIDE [Suspect]
     Indication: LUNG ADENOCARCINOMA
     Dosage: (150 MG QD), ORAL
     Route: 048
     Dates: start: 20081225, end: 20090117
  2. NAIXAN (NAPROXEN SODIUM) [Concomitant]
  3. CYTOTEC [Concomitant]
  4. OMEPRAZOLE [Concomitant]
  5. CHLORPROMAZINE HCL [Concomitant]

REACTIONS (7)
  - ADENOSQUAMOUS CELL LUNG CANCER STAGE IV [None]
  - DISSEMINATED INTRAVASCULAR COAGULATION [None]
  - HAEMOGLOBIN DECREASED [None]
  - HEPATIC FAILURE [None]
  - MALIGNANT NEOPLASM PROGRESSION [None]
  - METASTASES TO LIVER [None]
  - PLATELET COUNT DECREASED [None]
